FAERS Safety Report 4866495-4 (Version None)
Quarter: 2005Q4

REPORT INFORMATION
  Report Type: 
  Country: None (occurrence: None)
  Receive Date: 20051227
  Receipt Date: 20050801
  Transmission Date: 20060501
  Serious: Yes (Hospitalization, Other)
  Sender: FDA-Public Use
  Company Number: US-MERCK-0508USA00354

PATIENT
  Age: 53 Year
  Sex: Male
  Weight: 125 kg

DRUGS (1)
  1. VIOXX [Suspect]
     Route: 048
     Dates: start: 20011001

REACTIONS (13)
  - ACROCHORDON [None]
  - AMNESIA [None]
  - CALCULUS URINARY [None]
  - CHEST PAIN [None]
  - CORONARY ARTERY DISEASE [None]
  - GRANULOMA [None]
  - HYDRONEPHROSIS [None]
  - HYPERTENSION [None]
  - HYPERTRIGLYCERIDAEMIA [None]
  - LIP DISORDER [None]
  - MYOCARDIAL INFARCTION [None]
  - POLYTRAUMATISM [None]
  - SYNCOPE [None]
